FAERS Safety Report 5015400-9 (Version None)
Quarter: 2006Q2

REPORT INFORMATION
  Report Type: 
  Country: None (occurrence: None)
  Receive Date: 20060601
  Receipt Date: 20060523
  Transmission Date: 20061013
  Serious: Yes (Hospitalization, Other)
  Sender: FDA-Public Use
  Company Number: PHEH2006US06782

PATIENT
  Age: 59 Year
  Sex: Male

DRUGS (13)
  1. DEPAKOTE [Concomitant]
     Dosage: 500 MG, BID
     Route: 048
  2. LEXAPRO [Concomitant]
  3. SEROQUEL [Concomitant]
  4. HYDROXYZINE [Concomitant]
     Dosage: 50 MG, TID
  5. FLEXERIL [Concomitant]
     Dosage: 10 MG, BID
  6. ZOCOR [Concomitant]
     Dosage: UNK MG, UNK
  7. ASPIRIN [Concomitant]
  8. ALBUTEROL SULFATE AUTOHALER [Concomitant]
  9. SPIRIVA ^PFIZER^ [Concomitant]
  10. ADVAIR DISKUS 100/50 [Concomitant]
     Dosage: 250/50, BID
  11. DIOVAN [Suspect]
     Indication: HYPERTENSION
     Dates: start: 20060301
  12. DIOVAN [Suspect]
     Dosage: 320 MG, BID MISTAKENLY
     Route: 048
     Dates: start: 20060501
  13. HYDROCODONE [Suspect]

REACTIONS (6)
  - ABSCESS NECK [None]
  - ACCIDENTAL OVERDOSE [None]
  - BLOOD PRESSURE DECREASED [None]
  - CONFUSIONAL STATE [None]
  - NECK PAIN [None]
  - SUBCUTANEOUS ABSCESS [None]
